FAERS Safety Report 6693047-6 (Version None)
Quarter: 2010Q2

REPORT INFORMATION
  Report Type: 
  Country: None (occurrence: None)
  Receive Date: 20100422
  Receipt Date: 20100414
  Transmission Date: 20101027
  Serious: Yes (Other)
  Sender: FDA-Public Use
  Company Number: BR-ABBOTT-10P-020-0624338-00

PATIENT
  Sex: Female
  Weight: 90 kg

DRUGS (2)
  1. HUMIRA [Suspect]
     Indication: PSORIATIC ARTHROPATHY
     Route: 058
     Dates: start: 20090201, end: 20091201
  2. MICROLAX [Concomitant]
     Indication: PAIN
     Route: 048
     Dates: start: 20080101

REACTIONS (8)
  - COUGH [None]
  - INFLUENZA [None]
  - LEIOMYOMA [None]
  - LUNG INFECTION [None]
  - PNEUMONIA [None]
  - PSORIASIS [None]
  - VAGINAL HAEMORRHAGE [None]
  - WEIGHT INCREASED [None]
